FAERS Safety Report 5479268-9 (Version None)
Quarter: 2007Q4

REPORT INFORMATION
  Report Type: 
  Country: None (occurrence: None)
  Receive Date: 20071003
  Receipt Date: 20070918
  Transmission Date: 20080405
  Serious: Yes (Death)
  Sender: FDA-Public Use
  Company Number: 2007S1008843

PATIENT
  Sex: Male
  Weight: 40.8237 kg

DRUGS (1)
  1. FENTANYL TRANSDERMAL SYSTEM [Suspect]
     Indication: JOINT SPRAIN
     Dosage: 50 UG/HR; TRANSDERMAL
     Route: 062
     Dates: start: 20050919

REACTIONS (1)
  - OVERDOSE [None]
